FAERS Safety Report 19312143 (Version 1)
Quarter: 2021Q2

REPORT INFORMATION
  Report Type: Spontaneous
  Country: US (occurrence: US)
  Receive Date: 20210527
  Receipt Date: 20210527
  Transmission Date: 20210717
  Serious: Yes (Hospitalization, Other)
  Sender: FDA-Public Use
  Company Number: US-AUROBINDO-AUR-APL-2021-020580

PATIENT
  Age: 49 Year
  Sex: Female

DRUGS (3)
  1. ACICLOVIR [Concomitant]
     Active Substance: ACYCLOVIR
     Indication: PRODUCT USED FOR UNKNOWN INDICATION
     Dosage: UNK
     Route: 065
  2. NEVIRAPINE. [Suspect]
     Active Substance: NEVIRAPINE
     Indication: ANTIRETROVIRAL THERAPY
     Dosage: 200 MILLIGRAM, DAILY
     Route: 065
  3. LAMIVUDINE AND ZIDOVUDINE 150/300MG [Suspect]
     Active Substance: LAMIVUDINE\ZIDOVUDINE
     Indication: ANTIRETROVIRAL THERAPY
     Dosage: UNK, ONCE A DAY
     Route: 065

REACTIONS (2)
  - Acute HIV infection [Recovered/Resolved]
  - Treatment noncompliance [Recovered/Resolved]
